FAERS Safety Report 9131378 (Version 1)
Quarter: 2013Q1

REPORT INFORMATION
  Report Type: Report from Study
  Country: US (occurrence: US)
  Receive Date: 20130301
  Receipt Date: 20130301
  Transmission Date: 20140127
  Serious: No
  Sender: FDA-Public Use
  Company Number: US-MYLANLABS-2012S1003212

PATIENT
  Age: 62 Year
  Sex: Male

DRUGS (2)
  1. AMNESTEEM CAPSULES [Suspect]
     Dates: start: 201109, end: 201111
  2. AMNESTEEM CAPSULES [Suspect]
     Dates: start: 201111, end: 201201

REACTIONS (1)
  - Lipids increased [Recovering/Resolving]
